FAERS Safety Report 16352057 (Version 1)
Quarter: 2019Q2

REPORT INFORMATION
  Report Type: Spontaneous
  Country: US (occurrence: US)
  Receive Date: 20190419
  Receipt Date: 20190419
  Transmission Date: 20190711
  Serious: Yes (Other)
  Sender: FDA-Public Use
  Company Number: None

PATIENT
  Age: 77 Year
  Sex: Female

DRUGS (1)
  1. REVLIMID [Suspect]
     Active Substance: LENALIDOMIDE
     Indication: MYELOFIBROSIS
     Dosage: ?          OTHER FREQUENCY:QD;?
     Route: 048
     Dates: start: 201812

REACTIONS (3)
  - Rash erythematous [None]
  - Therapy cessation [None]
  - Off label use [None]

NARRATIVE: CASE EVENT DATE: 20190403
